FAERS Safety Report 5838932-X (Version None)
Quarter: 2008Q3

REPORT INFORMATION
  Report Type: 
  Country: None (occurrence: None)
  Receive Date: 20080808
  Receipt Date: 20080806
  Transmission Date: 20090109
  Serious: Yes (Other)
  Sender: FDA-Public Use
  Company Number: PHHY2008GB14690

PATIENT

DRUGS (1)
  1. GLEEVEC [Suspect]
     Indication: GASTROINTESTINAL STROMAL TUMOUR
     Dosage: 400 MG DAILY
     Route: 048
     Dates: start: 20080422, end: 20080708

REACTIONS (4)
  - ARRHYTHMIA [None]
  - PULMONARY OEDEMA [None]
  - SYNCOPE [None]
  - WOLFF-PARKINSON-WHITE SYNDROME [None]
